FAERS Safety Report 10008091 (Version 1)
Quarter: 2014Q1

REPORT INFORMATION
  Report Type: Spontaneous
  Country: IT (occurrence: IT)
  Receive Date: 20140313
  Receipt Date: 20140313
  Transmission Date: 20141002
  Serious: Yes (Other)
  Sender: FDA-Public Use
  Company Number: IT-MYLANLABS-2014S1004768

PATIENT
  Age: 42 Year
  Sex: Female

DRUGS (6)
  1. AMITRIPTYLINE [Suspect]
     Indication: PAIN
     Dosage: 25 MG/DAY; THEN 50 MG/DAY
     Route: 065
  2. AMITRIPTYLINE [Suspect]
     Indication: OFF LABEL USE
     Dosage: 25 MG/DAY; THEN 50 MG/DAY
     Route: 065
  3. AMITRIPTYLINE [Suspect]
     Indication: PAIN
     Dosage: 50 MG/DAY
     Route: 065
  4. AMITRIPTYLINE [Suspect]
     Indication: OFF LABEL USE
     Dosage: 50 MG/DAY
     Route: 065
  5. CARBAMAZEPINE [Suspect]
     Indication: PAIN
     Dosage: THEN 300MG EVERY 8H
     Route: 065
  6. CARBAMAZEPINE [Suspect]
     Indication: PAIN
     Route: 065

REACTIONS (4)
  - Ataxia [Unknown]
  - Somnolence [Unknown]
  - Orthostatic hypotension [Unknown]
  - Diplopia [Unknown]
